FAERS Safety Report 5411893-3 (Version None)
Quarter: 2007Q3

REPORT INFORMATION
  Report Type: 
  Country: None (occurrence: None)
  Receive Date: 20070810
  Receipt Date: 20070810
  Transmission Date: 20080115
  Serious: Yes (Other)
  Sender: FDA-Public Use
  Company Number: None

PATIENT
  Age: 31 Year
  Sex: Male
  Weight: 98 kg

DRUGS (1)
  1. CLOZAPINE [Suspect]
     Dates: start: 20070619, end: 20070625

REACTIONS (1)
  - WHITE BLOOD CELL COUNT DECREASED [None]
